FAERS Safety Report 6720274-1 (Version None)
Quarter: 2010Q2

REPORT INFORMATION
  Report Type: 
  Country: None (occurrence: None)
  Receive Date: 20100507
  Receipt Date: 20100427
  Transmission Date: 20101027
  Serious: Yes (Hospitalization)
  Sender: FDA-Public Use
  Company Number: CIP10000999

PATIENT
  Age: 72 Year
  Sex: Female

DRUGS (2)
  1. RISEDRONATE (RISEDRONATE SODIUM) TABLET, UNKNOWN [Suspect]
     Indication: OSTEOPOROSIS POSTMENOPAUSAL
     Dosage: ONCE WEEKLY, ORAL
     Route: 048
     Dates: start: 20030101
  2. ALENDRONATE SODIUM [Suspect]
     Indication: OSTEOPOROSIS POSTMENOPAUSAL
     Dates: start: 19970101, end: 20030101

REACTIONS (2)
  - FEMUR FRACTURE [None]
  - PATHOLOGICAL FRACTURE [None]
